FAERS Safety Report 10029667 (Version 1)
Quarter: 2014Q1

REPORT INFORMATION
  Report Type: Spontaneous
  Country: AU (occurrence: None)
  Receive Date: 20140321
  Receipt Date: 20140321
  Transmission Date: 20141002
  Serious: Yes (Disabling)
  Sender: FDA-Public Use
  Company Number: None

PATIENT
  Age: 76 Year
  Sex: Female
  Weight: 59 kg

DRUGS (7)
  1. RABEPRAZOLE [Suspect]
     Indication: GASTROOESOPHAGEAL REFLUX DISEASE
     Dosage: 1 TABLET
     Route: 048
     Dates: start: 20121012, end: 20140321
  2. PROGYNOVA [Concomitant]
  3. OSTELIN [Concomitant]
  4. CENTRUM [Concomitant]
  5. FISH OIL [Concomitant]
  6. CIDER VINEGAR [Concomitant]
  7. GUT RELIEF [Concomitant]

REACTIONS (19)
  - Malabsorption [None]
  - Dry skin [None]
  - Skin exfoliation [None]
  - Alopecia [None]
  - Onychoclasis [None]
  - Onychoclasis [None]
  - Unevaluable event [None]
  - Asthenia [None]
  - Fatigue [None]
  - Lethargy [None]
  - Gastrointestinal sounds abnormal [None]
  - Abdominal distension [None]
  - Discomfort [None]
  - Decreased appetite [None]
  - Blood sodium decreased [None]
  - Blood potassium decreased [None]
  - Blood iron decreased [None]
  - Malaise [None]
  - Weight increased [None]
